FAERS Safety Report 10551958 (Version 1)
Quarter: 2014Q4

REPORT INFORMATION
  Report Type: Spontaneous
  Country: US (occurrence: US)
  Receive Date: 20141029
  Receipt Date: 20141029
  Transmission Date: 20150529
  Serious: Yes (Other)
  Sender: FDA-Public Use
  Company Number: US-ABBVIE-14P-163-1298150-00

PATIENT
  Sex: Male

DRUGS (1)
  1. DEPAKOTE [Suspect]
     Active Substance: DIVALPROEX SODIUM
     Indication: MATERNAL EXPOSURE TIMING UNSPECIFIED
     Route: 064

REACTIONS (26)
  - Autism spectrum disorder [Unknown]
  - Abnormal behaviour [Unknown]
  - Developmental delay [Unknown]
  - Coordination abnormal [Unknown]
  - Pain [Unknown]
  - Cognitive disorder [Unknown]
  - Communication disorder [Unknown]
  - Sensory disturbance [Unknown]
  - Stereotypy [Unknown]
  - Anhedonia [Unknown]
  - Foetal exposure during pregnancy [Unknown]
  - Motor developmental delay [Unknown]
  - Activities of daily living impaired [Unknown]
  - Mental disorder [Unknown]
  - Economic problem [Unknown]
  - Unevaluable event [Unknown]
  - Injury [Unknown]
  - Illiteracy [Unknown]
  - Social problem [Unknown]
  - Dysphonia [Unknown]
  - Emotional distress [Unknown]
  - Decreased eye contact [Unknown]
  - Speech disorder [Unknown]
  - Change in sustained attention [Unknown]
  - Nervous system disorder [Unknown]
  - Anxiety [Unknown]
